FAERS Safety Report 7004723-X (Version None)
Quarter: 2010Q3

REPORT INFORMATION
  Report Type: 
  Country: None (occurrence: None)
  Receive Date: 20100917
  Receipt Date: 20100907
  Transmission Date: 20110219
  Serious: Yes (Hospitalization)
  Sender: FDA-Public Use
  Company Number: TCI2010A03701

PATIENT
  Age: 58 Year
  Sex: Male

DRUGS (4)
  1. ACTOS [Suspect]
     Indication: DIABETES MELLITUS
     Dosage: 15 MG (15 MG, 1  D) PER ORAL
     Route: 048
     Dates: start: 20100401, end: 20100907
  2. OLMETEC (OLMESARTAN MEDOXOMIL) [Concomitant]
  3. CARNACULIN (KALLIDINOGENASE) [Concomitant]
  4. EUGLUCON (GLIEBNCLAMIDE) [Concomitant]

REACTIONS (4)
  - ASCITES [None]
  - OEDEMA [None]
  - PLEURAL EFFUSION [None]
  - SKIN IRRITATION [None]
